FAERS Safety Report 24167783 (Version 1)
Quarter: 2024Q3

REPORT INFORMATION
  Report Type: Spontaneous
  Country: CN (occurrence: CN)
  Receive Date: 20240802
  Receipt Date: 20240802
  Transmission Date: 20241017
  Serious: Yes (Other)
  Sender: PFIZER
  Company Number: CN-PFIZER INC-PV202400099525

PATIENT
  Age: 59 Year
  Sex: Male

DRUGS (1)
  1. CYTARABINE [Suspect]
     Active Substance: CYTARABINE
     Indication: Chemotherapy
     Dosage: 5.3 G, 2X/DAY
     Route: 041
     Dates: start: 20240604, end: 20240608

REACTIONS (4)
  - Rash [Not Recovered/Not Resolved]
  - Pruritus [Recovering/Resolving]
  - Hiccups [Recovering/Resolving]
  - Rash erythematous [Not Recovered/Not Resolved]

NARRATIVE: CASE EVENT DATE: 20240606
